FAERS Safety Report 19887060 (Version 3)
Quarter: 2021Q4

REPORT INFORMATION
  Report Type: Report from Study
  Country: CA (occurrence: CA)
  Receive Date: 20210928
  Receipt Date: 20211122
  Transmission Date: 20220303
  Serious: Yes (Hospitalization)
  Sender: FDA-Public Use
  Company Number: CA-KOREA IPSEN PHARMA-2021-20704

PATIENT
  Age: 66 Year
  Sex: Female

DRUGS (8)
  1. LANREOTIDE ACETATE [Suspect]
     Active Substance: LANREOTIDE ACETATE
     Indication: Neuroendocrine tumour
     Dosage: 120 MG EVERY 4 WEEKS
     Route: 058
     Dates: start: 20210729
  2. HYDROCHLOROTHIAZIDE [Concomitant]
     Active Substance: HYDROCHLOROTHIAZIDE
  3. MORPHINE SULFATE [Concomitant]
     Active Substance: MORPHINE SULFATE
     Dosage: PRN
  4. DILTIAZEM [Concomitant]
     Active Substance: DILTIAZEM
  5. HCL ER [Concomitant]
  6. ROSUVASTATIN [Concomitant]
     Active Substance: ROSUVASTATIN
  7. IRBESARTAN [Concomitant]
     Active Substance: IRBESARTAN
  8. UNSPECIFIED INGREDIENT [Concomitant]
     Active Substance: UNSPECIFIED INGREDIENT

REACTIONS (9)
  - Colostomy [Not Recovered/Not Resolved]
  - Surgery [Unknown]
  - Burning sensation [Not Recovered/Not Resolved]
  - Injection site mass [Not Recovered/Not Resolved]
  - Abdominal discomfort [Not Recovered/Not Resolved]
  - Pain in extremity [Recovering/Resolving]
  - Pain [Unknown]
  - Peripheral swelling [Not Recovered/Not Resolved]
  - Fatigue [Not Recovered/Not Resolved]

NARRATIVE: CASE EVENT DATE: 20210818
